FAERS Safety Report 10500700 (Version 4)
Quarter: 2015Q2

REPORT INFORMATION
  Report Type: Report from Study
  Country: AU (occurrence: AU)
  Receive Date: 20141006
  Receipt Date: 20150526
  Transmission Date: 20150821
  Serious: Yes (Hospitalization)
  Sender: FDA-Public Use
  Company Number: AU-ROCHE-1449697

PATIENT
  Age: 51 Year
  Sex: Female

DRUGS (4)
  1. ACTEMRA [Suspect]
     Active Substance: TOCILIZUMAB
     Indication: RHEUMATOID ARTHRITIS
     Route: 042
     Dates: start: 20130918
  2. CELESTONE [Concomitant]
     Active Substance: BETAMETHASONE
     Indication: TENDON DISORDER
  3. FLECAINIDE [Suspect]
     Active Substance: FLECAINIDE
     Indication: HEART RATE IRREGULAR
     Route: 048
     Dates: start: 201408
  4. ATENOLOL. [Suspect]
     Active Substance: ATENOLOL
     Indication: ATRIAL FIBRILLATION
     Route: 048
     Dates: end: 201407

REACTIONS (6)
  - Tendon disorder [Not Recovered/Not Resolved]
  - Alopecia [Unknown]
  - Ligament rupture [Not Recovered/Not Resolved]
  - Heart rate irregular [Unknown]
  - Tendonitis [Unknown]
  - Drug ineffective [Unknown]

NARRATIVE: CASE EVENT DATE: 201407
